FAERS Safety Report 5884962-1 (Version None)
Quarter: 2008Q3

REPORT INFORMATION
  Report Type: 
  Country: None (occurrence: None)
  Receive Date: 20080916
  Receipt Date: 20080912
  Transmission Date: 20090109
  Serious: Yes (Hospitalization)
  Sender: FDA-Public Use
  Company Number: B0534564A

PATIENT
  Age: 75 Year
  Sex: Female

DRUGS (5)
  1. VALTREX [Suspect]
     Indication: HERPES ZOSTER
     Dosage: 1000MG THREE TIMES PER DAY
     Route: 048
     Dates: start: 20080820, end: 20080822
  2. RIKAVARIN [Concomitant]
     Indication: NEUROPATHY PERIPHERAL
     Dosage: 750MG PER DAY
     Route: 048
     Dates: start: 20080820, end: 20080822
  3. TROXSIN [Concomitant]
     Indication: NEUROPATHY PERIPHERAL
     Dosage: 300MG PER DAY
     Route: 048
     Dates: start: 20080820, end: 20080822
  4. LOXONIN [Concomitant]
     Indication: NEUROPATHY PERIPHERAL
     Dosage: 180MG PER DAY
     Route: 048
     Dates: start: 20080820, end: 20080822
  5. CYANOCOBALAMIN [Concomitant]
     Indication: DRUG USE FOR UNKNOWN INDICATION
     Dosage: 750MG PER DAY
     Route: 048
     Dates: start: 20080820, end: 20080822

REACTIONS (3)
  - BLISTER [None]
  - ERYTHEMA [None]
  - RENAL FAILURE ACUTE [None]
